FAERS Safety Report 5209882-7 (Version None)
Quarter: 2007Q1

REPORT INFORMATION
  Report Type: 
  Country: None (occurrence: None)
  Receive Date: 20070116
  Receipt Date: 20070108
  Transmission Date: 20070707
  Serious: Yes (Hospitalization)
  Sender: FDA-Public Use
  Company Number: GBWYE068308JAN07

PATIENT
  Age: 38 Year
  Sex: Female

DRUGS (6)
  1. ENBREL [Suspect]
     Indication: DRUG USE FOR UNKNOWN INDICATION
     Route: 058
  2. PETHIDINE [Concomitant]
     Dosage: UNKNOWN
     Route: 030
  3. ORAMORPH SR [Concomitant]
     Dosage: UNKNOWN
  4. PENICILLIN V POTASSIUM [Concomitant]
     Route: 048
  5. CYCLIZINE [Concomitant]
     Route: 048
  6. FOLIC ACID [Concomitant]

REACTIONS (2)
  - ESCHERICHIA SEPSIS [None]
  - URINARY TRACT INFECTION [None]
